FAERS Safety Report 19269168 (Version 1)
Quarter: 2021Q2

REPORT INFORMATION
  Report Type: Spontaneous
  Country: US (occurrence: US)
  Receive Date: 20210518
  Receipt Date: 20210518
  Transmission Date: 20210717
  Serious: Yes (Disabling)
  Sender: FDA-Public Use
  Company Number: None

PATIENT
  Age: 81 Year
  Sex: Male
  Weight: 77.4 kg

DRUGS (17)
  1. FLECAINIDE [Suspect]
     Active Substance: FLECAINIDE
     Indication: ATRIAL FIBRILLATION
     Dosage: ?          QUANTITY:1 TABLET(S);?
     Route: 048
     Dates: start: 20210516, end: 20210516
  2. FLONASE [Concomitant]
     Active Substance: FLUTICASONE PROPIONATE
  3. MONTELUKAST [Concomitant]
     Active Substance: MONTELUKAST SODIUM
  4. DOCUSATE [Concomitant]
     Active Substance: DOCUSATE
  5. GABAPENTIN. [Concomitant]
     Active Substance: GABAPENTIN
  6. SILDENIFIL [Concomitant]
  7. KETOCONAZOLE SHAMPOO [Concomitant]
     Active Substance: KETOCONAZOLE
  8. SYNTHROID [Concomitant]
     Active Substance: LEVOTHYROXINE SODIUM
  9. LORAZEPAM. [Concomitant]
     Active Substance: LORAZEPAM
  10. LITHIUM. [Concomitant]
     Active Substance: LITHIUM
  11. XYZAL [Concomitant]
     Active Substance: LEVOCETIRIZINE DIHYDROCHLORIDE
  12. VOLTAREN [Concomitant]
     Active Substance: DICLOFENAC SODIUM
  13. MECLIZINE [Concomitant]
     Active Substance: MECLIZINE HYDROCHLORIDE
  14. TYLENOL [Concomitant]
     Active Substance: ACETAMINOPHEN
  15. VITAMINS/MINERALS [Concomitant]
  16. RITALIN [Concomitant]
     Active Substance: METHYLPHENIDATE HYDROCHLORIDE
  17. CHONDROITIN [Concomitant]
     Active Substance: CHONDROITIN

REACTIONS (5)
  - Haemoglobin decreased [None]
  - Anaemia [None]
  - Dyspnoea [None]
  - Faeces discoloured [None]
  - Blood disorder [None]

NARRATIVE: CASE EVENT DATE: 20210516
